FAERS Safety Report 4712670-9 (Version None)
Quarter: 2005Q3

REPORT INFORMATION
  Report Type: 
  Country: None (occurrence: None)
  Receive Date: 20050706
  Receipt Date: 20050310
  Transmission Date: 20060218
  Serious: Yes (Hospitalization)
  Sender: FDA-Public Use
  Company Number: US-2005-003474

PATIENT
  Age: 83 Year
  Sex: Female
  Weight: 53.1 kg

DRUGS (9)
  1. CAMPATH [Suspect]
     Indication: CHRONIC LYMPHOCYTIC LEUKAEMIA
     Dosage: SEE IMAGE
     Route: 058
     Dates: start: 20050131, end: 20050131
  2. CAMPATH [Suspect]
     Indication: CHRONIC LYMPHOCYTIC LEUKAEMIA
     Dosage: SEE IMAGE
     Route: 058
     Dates: start: 20050202, end: 20050202
  3. CAMPATH [Suspect]
     Indication: CHRONIC LYMPHOCYTIC LEUKAEMIA
     Dosage: SEE IMAGE
     Route: 058
     Dates: start: 20050204, end: 20050214
  4. LISINOPRIL W/HYDROCHLOROTHIAZIDE [Concomitant]
  5. MULTIPLE VITAMINS (RETINOL) [Concomitant]
  6. BENADRYL ^ACHE^ (DIPHENHYDRAMINE HYDROCHLORIDE, MENTHOL, AMMONIUM CHLO [Concomitant]
  7. TYLENOL [Concomitant]
  8. SULFAMETHOXAZOL MED TRIMETOPRIM [Concomitant]
  9. FAMCICLOVIR [Concomitant]

REACTIONS (4)
  - BLOOD POTASSIUM ABNORMAL [None]
  - FAILURE TO THRIVE [None]
  - HYPONATRAEMIA [None]
  - RESPIRATORY DISORDER [None]
